FAERS Safety Report 24910261 (Version 1)
Quarter: 2025Q1

REPORT INFORMATION
  Report Type: Spontaneous
  Country: IT (occurrence: IT)
  Receive Date: 20250131
  Receipt Date: 20250131
  Transmission Date: 20250409
  Serious: Yes (Other)
  Sender: MYLAN
  Company Number: IT-MYLANLABS-2025M1007930

PATIENT
  Age: 5 Decade
  Sex: Male

DRUGS (2)
  1. FINGOLIMOD [Suspect]
     Active Substance: FINGOLIMOD
     Indication: Multiple sclerosis
     Route: 065
  2. FINGOLIMOD [Suspect]
     Active Substance: FINGOLIMOD
     Route: 065

REACTIONS (4)
  - COVID-19 [Recovered/Resolved]
  - Rebound effect [Recovering/Resolving]
  - Multiple sclerosis relapse [Recovering/Resolving]
  - Lymphopenia [Unknown]
